FAERS Safety Report 19123066 (Version 1)
Quarter: 2021Q2

REPORT INFORMATION
  Report Type: Spontaneous
  Country: US (occurrence: US)
  Receive Date: 20210412
  Receipt Date: 20210412
  Transmission Date: 20210717
  Serious: No
  Sender: FDA-Public Use
  Company Number: US-TAKEDA-2021TUS021254

PATIENT
  Sex: Male
  Weight: 45 kg

DRUGS (8)
  1. VITAMIN C [Concomitant]
     Active Substance: ASCORBIC ACID
  2. VYVANSE [Suspect]
     Active Substance: LISDEXAMFETAMINE DIMESYLATE
     Dosage: 50 MILLIGRAM
     Route: 065
  3. VYVANSE [Suspect]
     Active Substance: LISDEXAMFETAMINE DIMESYLATE
     Dosage: 60 MILLIGRAM
     Route: 065
  4. VYVANSE [Suspect]
     Active Substance: LISDEXAMFETAMINE DIMESYLATE
     Dosage: 45 MILLIGRAM
     Route: 065
  5. PROCENTRA [Concomitant]
     Active Substance: DEXTROAMPHETAMINE SULFATE
     Dosage: 5 MILLILITER
  6. VYVANSE [Suspect]
     Active Substance: LISDEXAMFETAMINE DIMESYLATE
     Indication: ATTENTION DEFICIT HYPERACTIVITY DISORDER
     Dosage: 30 MILLIGRAM
     Route: 065
     Dates: start: 20201116
  7. RESPERAL?DM [Concomitant]
     Dosage: 1.5 MILLILITER
  8. MULTI?VIT [Concomitant]
     Active Substance: VITAMINS

REACTIONS (8)
  - Feeling abnormal [Unknown]
  - Emotional disorder [Unknown]
  - Separation anxiety disorder [Unknown]
  - Therapeutic product effect decreased [Unknown]
  - Stubbornness [Unknown]
  - Crying [Unknown]
  - Frustration tolerance decreased [Unknown]
  - Anxiety [Unknown]
